FAERS Safety Report 8899160 (Version 1)
Quarter: 2012Q4

REPORT INFORMATION
  Report Type: 
  Country: US (occurrence: US)
  Receive Date: 20121108
  Receipt Date: 20121108
  Transmission Date: 20130627
  Serious: No
  Sender: FDA-Public Use
  Company Number: US-AMGEN-USASP2012033628

PATIENT
  Age: 55 Year
  Sex: Female
  Weight: 70.75 kg

DRUGS (8)
  1. ENBREL [Suspect]
     Indication: PRODUCT USED FOR UNKNOWN INDICATION
     Dosage: 50 mg, qwk
     Route: 058
  2. CELEBREX [Concomitant]
     Dosage: 100 mg, UNK
  3. TRAMADOL HCL [Concomitant]
     Dosage: 50 mg, UNK
  4. FOLIC ACID [Concomitant]
     Dosage: 1 mg, UNK
  5. VITAMIN D3 [Concomitant]
     Dosage: UNK
  6. ESTROGEN [Concomitant]
  7. NAPROXEN [Concomitant]
     Dosage: UNK
  8. MEDROL                             /00049601/ [Concomitant]
     Dosage: UNK

REACTIONS (8)
  - Tendonitis [Unknown]
  - Gait disturbance [Unknown]
  - Contusion [Unknown]
  - Injection site haemorrhage [Unknown]
  - Injection site reaction [Unknown]
  - Injection site swelling [Unknown]
  - Injection site erythema [Unknown]
  - Injection site pain [Unknown]
